FAERS Safety Report 15861245 (Version 1)
Quarter: 2019Q1

REPORT INFORMATION
  Report Type: Spontaneous
  Country: US (occurrence: US)
  Receive Date: 20190124
  Receipt Date: 20190124
  Transmission Date: 20190417
  Serious: No
  Sender: FDA-Public Use
  Company Number: US-TAKEDA-2019TUS001827

PATIENT
  Age: 19 Year
  Sex: Female
  Weight: 59.41 kg

DRUGS (2)
  1. ENTYVIO [Suspect]
     Active Substance: VEDOLIZUMAB
     Dosage: 600 MILLIGRAM, Q4WEEKS
     Route: 042
     Dates: start: 201810
  2. ENTYVIO [Suspect]
     Active Substance: VEDOLIZUMAB
     Indication: CROHN^S DISEASE
     Dosage: 300 MILLIGRAM
     Route: 042
     Dates: start: 201804

REACTIONS (2)
  - Off label use [Unknown]
  - Therapy partial responder [Unknown]

NARRATIVE: CASE EVENT DATE: 201810
